FAERS Safety Report 8809391 (Version 6)
Quarter: 2013Q1

REPORT INFORMATION
  Report Type: Report from Study
  Country: US (occurrence: US)
  Receive Date: 20120926
  Receipt Date: 20130109
  Transmission Date: 20140127
  Serious: Yes (Hospitalization)
  Sender: FDA-Public Use
  Company Number: US-JNJFOC-20120909325

PATIENT
  Age: 16 Year
  Sex: Male
  Weight: 38.9 kg

DRUGS (4)
  1. REMICADE [Suspect]
     Indication: CROHN^S DISEASE
     Route: 042
  2. MYCOSTATIN [Concomitant]
  3. CULTURELLE [Concomitant]
  4. LACTOBACILLUS [Concomitant]

REACTIONS (1)
  - Crohn^s disease [Recovered/Resolved]
